FAERS Safety Report 15969761 (Version 2)
Quarter: 2019Q1

REPORT INFORMATION
  Report Type: Spontaneous
  Country: ZA (occurrence: ZA)
  Receive Date: 20190215
  Receipt Date: 20190308
  Transmission Date: 20190418
  Serious: Yes (Hospitalization)
  Sender: FDA-Public Use
  Company Number: ZA-NOVOPROD-646610

PATIENT
  Age: 66 Year
  Sex: Female

DRUGS (5)
  1. VAGIFEM [Suspect]
     Active Substance: ESTRADIOL
     Indication: HORMONE REPLACEMENT THERAPY
     Dosage: 10 ?G, SINGLE
     Route: 067
  2. SANDOZ BROMAZEPAM [Concomitant]
     Active Substance: BROMAZEPAM
  3. BETMIGA [Concomitant]
     Active Substance: MIRABEGRON
  4. NEXMEZOL [Concomitant]
     Active Substance: ESOMEPRAZOLE MAGNESIUM
  5. MEBEVERINE HCL [Concomitant]
     Route: 065

REACTIONS (3)
  - Gastrointestinal disorder [Not Recovered/Not Resolved]
  - Intestinal polyp [Not Recovered/Not Resolved]
  - Anxiety [Not Recovered/Not Resolved]
